FAERS Safety Report 12679223 (Version 2)
Quarter: 2016Q3

REPORT INFORMATION
  Report Type: Spontaneous
  Country: FR (occurrence: FR)
  Receive Date: 20160824
  Receipt Date: 20160908
  Transmission Date: 20161109
  Serious: Yes (Hospitalization, Other)
  Sender: FDA-Public Use
  Company Number: FR-AMGEN-FRASP2016110094

PATIENT
  Age: 39 Year
  Sex: Male

DRUGS (10)
  1. RIMIFON [Suspect]
     Active Substance: ISONIAZID
     Indication: LATENT TUBERCULOSIS
     Dosage: UNK
     Route: 065
     Dates: start: 20140901, end: 20141030
  2. TRAMADOL ARROW [Concomitant]
     Active Substance: TRAMADOL
     Dosage: UNK
  3. OMEPRAZOLE. [Concomitant]
     Active Substance: OMEPRAZOLE
     Dosage: UNK
  4. TRAMADOL TEVA [Concomitant]
     Active Substance: TRAMADOL
     Dosage: UNK
  5. HUMIRA [Suspect]
     Active Substance: ADALIMUMAB
     Indication: SPONDYLITIS
     Dosage: UNK
     Route: 065
     Dates: start: 20150126, end: 20150707
  6. TITANOREINE [Concomitant]
     Active Substance: CARRAGEENAN\TITANIUM\ZINC
     Dosage: UNK
  7. FORLAX [Concomitant]
     Active Substance: POLYETHYLENE GLYCOL 4000
     Dosage: UNK
  8. PARACETAMOL [Concomitant]
     Active Substance: ACETAMINOPHEN
     Dosage: UNK
  9. ENBREL [Suspect]
     Active Substance: ETANERCEPT
     Indication: SPONDYLITIS
     Dosage: UNK, WEEKLY
     Route: 058
     Dates: start: 20141013, end: 20150126
  10. VIREAD [Concomitant]
     Active Substance: TENOFOVIR DISOPROXIL FUMARATE
     Dosage: UNK
     Route: 048
     Dates: start: 20160106, end: 20160406

REACTIONS (4)
  - Medication error [Recovered/Resolved]
  - Neutropenia [Unknown]
  - Drug ineffective [Unknown]
  - Bone tuberculosis [Not Recovered/Not Resolved]

NARRATIVE: CASE EVENT DATE: 20140901
